FAERS Safety Report 4649565-5 (Version None)
Quarter: 2005Q2

REPORT INFORMATION
  Report Type: 
  Country: None (occurrence: None)
  Receive Date: 20050427
  Receipt Date: 20050411
  Transmission Date: 20051028
  Serious: Yes (Other)
  Sender: FDA-Public Use
  Company Number: 213759

PATIENT
  Age: 59 Year
  Sex: Male
  Weight: 85.3 kg

DRUGS (2)
  1. RAPTIVA [Suspect]
     Indication: PSORIASIS
     Dosage: 0.9 ML, 1/WEEK, SUBCUTANEOUS
     Route: 058
     Dates: start: 20041012, end: 20050330
  2. VIAGRA [Concomitant]

REACTIONS (5)
  - BLOOD URINE PRESENT [None]
  - CALCULUS URETERIC [None]
  - LUNG CARCINOMA CELL TYPE UNSPECIFIED RECURRENT [None]
  - RENAL MASS [None]
  - URETERIC DILATATION [None]
